FAERS Safety Report 16627869 (Version 1)
Quarter: 2019Q3

REPORT INFORMATION
  Report Type: Spontaneous
  Country: US (occurrence: US)
  Receive Date: 20190611
  Receipt Date: 20190611
  Transmission Date: 20191004
  Serious: Yes (Disabling)
  Sender: FDA-Public Use
  Company Number: None

PATIENT

DRUGS (1)
  1. QVAR REDIHALER [Suspect]
     Active Substance: BECLOMETHASONE DIPROPIONATE
     Indication: ASTHMA
     Dates: start: 201803

REACTIONS (10)
  - Dyspnoea [None]
  - Lacrimation increased [None]
  - Sinus disorder [None]
  - Bone pain [None]
  - Insomnia [None]
  - Dysphonia [None]
  - Product closure issue [None]
  - Product quality issue [None]
  - Headache [None]
  - Lethargy [None]

NARRATIVE: CASE EVENT DATE: 20180309
